FAERS Safety Report 11873168 (Version 2)
Quarter: 2016Q1

REPORT INFORMATION
  Report Type: Report from Study
  Country: ES (occurrence: ES)
  Receive Date: 20151228
  Receipt Date: 20160128
  Transmission Date: 20160526
  Serious: Yes (Hospitalization)
  Sender: FDA-Public Use
  Company Number: PHHO2015ES020008

PATIENT
  Age: 41 Year
  Sex: Male
  Weight: 74.6 kg

DRUGS (10)
  1. PAZOPANIB [Suspect]
     Active Substance: PAZOPANIB
     Indication: RENAL CELL CARCINOMA
     Dosage: 800 MG, QD
     Route: 048
     Dates: start: 20150907, end: 20151123
  2. PAZOPANIB [Suspect]
     Active Substance: PAZOPANIB
     Dosage: 800 MG, QD
     Route: 048
     Dates: start: 20151209, end: 20151222
  3. INTERFERON ALFA-2A [Suspect]
     Active Substance: INTERFERON ALFA-2A
     Indication: RENAL CELL CARCINOMA
     Dosage: 3 IU, QW3(THREE DAYS IN A WEEK)
     Route: 058
     Dates: start: 20150907, end: 20151222
  4. ESOMEPRAZOLE [Concomitant]
     Active Substance: ESOMEPRAZOLE
     Indication: PROPHYLAXIS
     Dosage: 40 MG, TID
     Route: 042
     Dates: start: 20151126, end: 20151202
  5. PARACETAMOL [Concomitant]
     Active Substance: ACETAMINOPHEN
     Indication: PRODUCT USED FOR UNKNOWN INDICATION
     Dosage: 1 G, Q6H
     Route: 048
  6. INTERFERON ALFA-2A [Suspect]
     Active Substance: INTERFERON ALFA-2A
     Dosage: 3 IU, QW3
     Route: 058
     Dates: start: 20160119
  7. LORAZEPAM. [Concomitant]
     Active Substance: LORAZEPAM
     Indication: PROPHYLAXIS
     Dosage: 5 MG, QD
     Route: 048
     Dates: start: 2012
  8. PARACETAMOL [Concomitant]
     Active Substance: ACETAMINOPHEN
     Dosage: 650 MG, Q10H
     Route: 048
  9. PAZOPANIB [Suspect]
     Active Substance: PAZOPANIB
     Dosage: 400 MG, QD
     Route: 048
     Dates: start: 20160119
  10. ULTRA LEVURA [Concomitant]
     Active Substance: SACCHAROMYCES CEREVISIAE
     Indication: PROPHYLAXIS
     Dosage: UNK (TID)
     Route: 048
     Dates: start: 20151126, end: 20151202

REACTIONS (3)
  - Personality change [Recovered/Resolved]
  - Eczema [Recovered/Resolved with Sequelae]
  - Mucosal inflammation [Recovered/Resolved with Sequelae]

NARRATIVE: CASE EVENT DATE: 20151124
